FAERS Safety Report 19465710 (Version 2)
Quarter: 2021Q2

REPORT INFORMATION
  Report Type: Spontaneous
  Country: None (occurrence: US)
  Receive Date: 20210626
  Receipt Date: 20210626
  Transmission Date: 20210717
  Serious: Yes (Death)
  Sender: FDA-Public Use
  Company Number: US-FRESENIUS MEDICAL CARE RENAL THERAPIES GROUP-FMC-2106-000959

PATIENT
  Age: 69 Year
  Sex: Male
  Weight: 74.91 kg

DRUGS (23)
  1. FISH OIL [Concomitant]
     Active Substance: FISH OIL
  2. LACTULOSE. [Concomitant]
     Active Substance: LACTULOSE
  3. VITAMIN C [Concomitant]
     Active Substance: ASCORBIC ACID
  4. MULTIVITAMIN [Concomitant]
     Active Substance: VITAMINS
  5. ATORVASTATIN CALCIUM. [Concomitant]
     Active Substance: ATORVASTATIN CALCIUM
  6. CARVEDILOL. [Concomitant]
     Active Substance: CARVEDILOL
  7. LIDOCAINE PRILOCAINE [Concomitant]
     Active Substance: LIDOCAINE\PRILOCAINE
  8. GABAPENTIN. [Concomitant]
     Active Substance: GABAPENTIN
  9. CHLORMEZANONE [Concomitant]
     Active Substance: CHLORMEZANONE
  10. PATIROMER [Concomitant]
     Active Substance: PATIROMER
     Indication: HYPERKALAEMIA
  11. PARACETAMOL [Concomitant]
     Active Substance: ACETAMINOPHEN
  12. AMLODIPINE BESYLATE. [Concomitant]
     Active Substance: AMLODIPINE BESYLATE
  13. LIQUACEL [Concomitant]
  14. SUCROFERRIC OXYHYDROXIDE [Concomitant]
     Active Substance: SUCROFERRIC OXYHYDROXIDE
  15. LACTOBACILLUS [Concomitant]
     Active Substance: LACTOBACILLUS ACIDOPHILUS
  16. OMEPRAZOLE. [Concomitant]
     Active Substance: OMEPRAZOLE
  17. CINACALCET. [Concomitant]
     Active Substance: CINACALCET
  18. PHOSLO [Suspect]
     Active Substance: CALCIUM ACETATE
     Indication: HYPERPHOSPHATAEMIA
     Route: 048
  19. ESTAZOLAM. [Concomitant]
     Active Substance: ESTAZOLAM
  20. NITROGLYCERIN. [Concomitant]
     Active Substance: NITROGLYCERIN
  21. FUROSEMIDE. [Concomitant]
     Active Substance: FUROSEMIDE
  22. ONDANSETRON [Concomitant]
     Active Substance: ONDANSETRON
  23. FERROUS SULFATE. [Concomitant]
     Active Substance: FERROUS SULFATE

REACTIONS (1)
  - Death [Fatal]
